FAERS Safety Report 10014624 (Version 2)
Quarter: 2014Q1

REPORT INFORMATION
  Report Type: Spontaneous
  Country: US (occurrence: US)
  Receive Date: 20140317
  Receipt Date: 20140317
  Transmission Date: 20141002
  Serious: Yes (Disabling)
  Sender: FDA-Public Use
  Company Number: US-GE HEALTHCARE MEDICAL DIAGNOSTICS-OSCN-PR-0710S-0424

PATIENT
  Age: 46 Year
  Sex: Male

DRUGS (4)
  1. OMNISCAN [Suspect]
     Indication: HEPATIC CANCER
     Route: 042
     Dates: start: 20040607, end: 20040607
  2. GADOLINIUM (UNSPECIFIED) [Suspect]
     Indication: CONVULSION
     Route: 042
     Dates: start: 19950927, end: 19950927
  3. MAGNEVIST [Suspect]
     Indication: CONVULSION
     Route: 042
     Dates: start: 19950131, end: 19950131
  4. MAGNEVIST [Suspect]
     Route: 042
     Dates: start: 19960917, end: 19960917

REACTIONS (1)
  - Nephrogenic systemic fibrosis [Not Recovered/Not Resolved]
